FAERS Safety Report 4484975-0 (Version None)
Quarter: 2004Q3

REPORT INFORMATION
  Report Type: 
  Country: None (occurrence: None)
  Receive Date: 20040921
  Receipt Date: 20030924
  Transmission Date: 20050211
  Serious: Yes (Other)
  Sender: FDA-Public Use
  Company Number: 163-20785-03090749

PATIENT
  Age: 53 Year
  Sex: Female

DRUGS (2)
  1. THALOMID [Suspect]
     Indication: OVARIAN CANCER
     Dosage: 300 MG, QD, ORAL
     Route: 048
     Dates: start: 20030519, end: 20030918
  2. TOPOTECAN (TOPOTECAN) (INJECTION) [Suspect]
     Indication: OVARIAN CANCER
     Dosage: 1 MG/M2, X5D, INTRAVENOUS
     Route: 042
     Dates: start: 20030519, end: 20030918

REACTIONS (3)
  - CHEST PAIN [None]
  - GAIT DISTURBANCE [None]
  - TREMOR [None]
